FAERS Safety Report 6016710-9 (Version None)
Quarter: 2008Q4

REPORT INFORMATION
  Report Type: 
  Country: None (occurrence: None)
  Receive Date: 20081222
  Receipt Date: 20081216
  Transmission Date: 20090506
  Serious: Yes (Other)
  Sender: FDA-Public Use
  Company Number: IE-B.I. PHARMACEUTICALS,INC./RIDGEFIELD-2008-UK-01610UK

PATIENT
  Sex: Female

DRUGS (8)
  1. MICARDIS [Suspect]
     Indication: SYSTOLIC HYPERTENSION
     Dosage: 40MG
     Route: 048
     Dates: start: 20080902, end: 20080913
  2. FRUMIL LOW STRENGTH [Concomitant]
  3. DIFENE DUAL RELEASE [Concomitant]
  4. ALBUTEROL SULFATE [Concomitant]
  5. SERETIDE 250 [Concomitant]
  6. RABEPRAZOLE SODIUM [Concomitant]
  7. CALCICHEW D3 FORTE [Concomitant]
  8. RABEPRAZOLE SODIUM [Concomitant]

REACTIONS (2)
  - DIPLOPIA [None]
  - NAUSEA [None]
